FAERS Safety Report 19965554 (Version 2)
Quarter: 2021Q4

REPORT INFORMATION
  Report Type: Spontaneous
  Country: US (occurrence: US)
  Receive Date: 20211018
  Receipt Date: 20211105
  Transmission Date: 20220303
  Serious: Yes (Death, Hospitalization)
  Sender: FDA-Public Use
  Company Number: US-RIGEL PHARMACEUTICALS, INC.-2021FOS000692

PATIENT
  Age: 62 Year
  Sex: Male
  Weight: 108.84 kg

DRUGS (3)
  1. TAVALISSE [Suspect]
     Active Substance: FOSTAMATINIB
     Indication: Immune thrombocytopenia
     Dosage: 100 MG, BID
     Route: 048
     Dates: start: 20201124
  2. COVID-19 VACCINE [Concomitant]
     Indication: COVID-19
     Dosage: UNK
     Dates: start: 2021, end: 2021
  3. IMMUNE GLOBULIN [Concomitant]
     Indication: Product used for unknown indication
     Dosage: UNK
     Dates: start: 2021

REACTIONS (2)
  - Death [Fatal]
  - Splenectomy [Unknown]

NARRATIVE: CASE EVENT DATE: 20210914
